FAERS Safety Report 5960755-1 (Version None)
Quarter: 2008Q4

REPORT INFORMATION
  Report Type: 
  Country: None (occurrence: None)
  Receive Date: 20081120
  Receipt Date: 20081111
  Transmission Date: 20090506
  Serious: Yes (Other)
  Sender: FDA-Public Use
  Company Number: JP-PFIZER INC-2008093742

PATIENT
  Age: 75 Year
  Sex: Female

DRUGS (2)
  1. HALCION [Suspect]
     Indication: SLEEP DISORDER
     Dosage: DAILY DOSE:.125MG
     Route: 048
  2. ALPRAZOLAM [Suspect]
     Route: 048

REACTIONS (1)
  - INTRAOCULAR PRESSURE INCREASED [None]
